FAERS Safety Report 8819486 (Version 3)
Quarter: 2013Q1

REPORT INFORMATION
  Report Type: Spontaneous
  Country: US (occurrence: US)
  Receive Date: 20120930
  Receipt Date: 20130120
  Transmission Date: 20140127
  Serious: No
  Sender: FDA-Public Use
  Company Number: US-ASTRAZENECA-2012SE72138

PATIENT
  Sex: Female

DRUGS (1)
  1. RHINOCORT AQUA [Suspect]
     Indication: MULTIPLE ALLERGIES
     Route: 045
     Dates: end: 201211

REACTIONS (5)
  - Nasopharyngitis [Unknown]
  - Eye pruritus [Unknown]
  - Rhinorrhoea [Unknown]
  - Off label use [Unknown]
  - Drug dose omission [Unknown]
